FAERS Safety Report 8104220-4 (Version None)
Quarter: 2012Q1

REPORT INFORMATION
  Report Type: 
  Country: None (occurrence: None)
  Receive Date: 20120201
  Receipt Date: 20120131
  Transmission Date: 20120608
  Serious: Yes (Hospitalization)
  Sender: FDA-Public Use
  Company Number: IT-PFIZER INC-2012017544

PATIENT
  Age: 61 Year
  Sex: Female

DRUGS (10)
  1. TRUVADA [Concomitant]
     Indication: HIV INFECTION
  2. LORAZEPAM [Suspect]
     Dosage: 2.5 MG, DAILY
     Route: 048
     Dates: start: 20110623, end: 20110916
  3. OMEPRAZOLE [Concomitant]
  4. RIFATER [Concomitant]
  5. ASPIRIN [Concomitant]
  6. HALCION [Suspect]
     Dosage: UNK
     Route: 048
     Dates: start: 20110623, end: 20110916
  7. KEPPRA [Concomitant]
     Indication: POSTICTAL STATE
     Dosage: UNK
  8. TRAMADOL HCL [Concomitant]
  9. NORVIR [Concomitant]
  10. STILNOX [Suspect]
     Dosage: UNK
     Route: 048
     Dates: start: 20110623, end: 20110916

REACTIONS (2)
  - DRUG ABUSE [None]
  - COMA [None]
